FAERS Safety Report 4596741-6 (Version None)
Quarter: 2005Q1

REPORT INFORMATION
  Report Type: 
  Country: None (occurrence: None)
  Receive Date: 20050302
  Receipt Date: 20050217
  Transmission Date: 20050727
  Serious: Yes (Hospitalization, Other)
  Sender: FDA-Public Use
  Company Number: FR-GLAXOSMITHKLINE-B0373055A

PATIENT
  Age: 52 Year
  Sex: Male

DRUGS (10)
  1. ZEFFIX [Suspect]
     Dosage: 100MG PER DAY
     Route: 048
     Dates: start: 20030315, end: 20050125
  2. ISKEDYL [Suspect]
     Route: 048
     Dates: end: 20050125
  3. VASTAREL [Suspect]
     Dosage: 70MG PER DAY
     Route: 048
     Dates: end: 20050125
  4. DETENSIEL [Suspect]
     Dosage: 1UNIT PER DAY
     Route: 048
     Dates: start: 20050121, end: 20050125
  5. FOZITEC [Suspect]
     Indication: HYPERTENSION
     Route: 048
     Dates: end: 20050121
  6. ATACAND [Suspect]
     Dosage: 16MG PER DAY
     Route: 048
     Dates: start: 20050121, end: 20050125
  7. ATEPADENE [Concomitant]
     Dosage: 6UNIT PER DAY
     Route: 065
  8. NOOTROPYL [Concomitant]
     Route: 065
  9. TANAKAN [Concomitant]
     Route: 065
  10. METEOXANE [Concomitant]
     Route: 065

REACTIONS (18)
  - ALANINE AMINOTRANSFERASE INCREASED [None]
  - ANURIA [None]
  - ARRHYTHMIA [None]
  - ASCITES [None]
  - ATRIAL FIBRILLATION [None]
  - DIZZINESS POSTURAL [None]
  - DYSPNOEA EXERTIONAL [None]
  - HEPATOCELLULAR DAMAGE [None]
  - HYPERCALCAEMIA [None]
  - INFLAMMATION [None]
  - ISCHAEMIA [None]
  - LIVER DISORDER [None]
  - MALAISE [None]
  - METABOLIC ACIDOSIS [None]
  - MULTIPLE MYELOMA [None]
  - OEDEMA PERIPHERAL [None]
  - OLIGURIA [None]
  - RENAL FAILURE ACUTE [None]
